FAERS Safety Report 7132477-5 (Version None)
Quarter: 2010Q4

REPORT INFORMATION
  Report Type: 
  Country: None (occurrence: None)
  Receive Date: 20101202
  Receipt Date: 20101118
  Transmission Date: 20110411
  Serious: Yes (Other)
  Sender: FDA-Public Use
  Company Number: PHHY2010US79398

PATIENT
  Sex: Male
  Weight: 145 kg

DRUGS (5)
  1. BENAZEPRIL HCL TABLETS (NGX) [Suspect]
     Indication: RENAL DISORDER
     Dosage: 5 MG, QD
     Dates: start: 20101102, end: 20101105
  2. ASPIRIN [Concomitant]
     Dosage: 81 MG, UNK
     Dates: start: 20050101, end: 20101104
  3. FISH OIL [Concomitant]
     Dosage: UNK
     Dates: end: 20101104
  4. MILK THISTLE [Concomitant]
     Dosage: UNK
     Dates: end: 20101104
  5. GARLIC [Concomitant]
     Dosage: UNK
     Dates: end: 20101104

REACTIONS (4)
  - BLOOD PRESSURE INCREASED [None]
  - DRUG INTERACTION [None]
  - EPISTAXIS [None]
  - PALPITATIONS [None]
